FAERS Safety Report 25988488 (Version 1)
Quarter: 2025Q4

REPORT INFORMATION
  Report Type: Spontaneous
  Country: EU (occurrence: EU)
  Receive Date: 20251103
  Receipt Date: 20251103
  Transmission Date: 20260118
  Serious: Yes (Other)
  Sender: TEVA
  Company Number: None

PATIENT
  Age: 42 Year
  Sex: Male

DRUGS (1)
  1. LAMOTRIGINE [Suspect]
     Active Substance: LAMOTRIGINE
     Indication: Bipolar disorder
     Dosage: 25 MG/DAY FOR 1 WEEK, THEN 50 MG/DAY
     Route: 048
     Dates: start: 20250625

REACTIONS (3)
  - Pyrexia [Unknown]
  - Rash maculo-papular [Unknown]
  - Face oedema [Unknown]

NARRATIVE: CASE EVENT DATE: 20250709
